FAERS Safety Report 6593388-7 (Version None)
Quarter: 2010Q1

REPORT INFORMATION
  Report Type: 
  Country: None (occurrence: None)
  Receive Date: 20100222
  Receipt Date: 20090326
  Transmission Date: 20100710
  Serious: No
  Sender: FDA-Public Use
  Company Number: US-BRISTOL-MYERS SQUIBB COMPANY-14548838

PATIENT
  Age: 50 Year
  Sex: Female
  Weight: 63 kg

DRUGS (3)
  1. ORENCIA [Suspect]
     Indication: RHEUMATOID ARTHRITIS
     Dosage: LAST DOSE: 09FEB09
     Route: 042
     Dates: start: 20081119
  2. IBUPROFEN [Concomitant]
  3. LEVOTHYROXINE SODIUM [Concomitant]

REACTIONS (1)
  - RASH PRURITIC [None]
